FAERS Safety Report 10409659 (Version 1)
Quarter: 2014Q3

REPORT INFORMATION
  Report Type: Spontaneous
  Country: US (occurrence: None)
  Receive Date: 20140825
  Receipt Date: 20140825
  Transmission Date: 20150326
  Serious: Yes (Hospitalization)
  Sender: FDA-Public Use
  Company Number: None

PATIENT
  Age: 59 Year
  Sex: Female

DRUGS (1)
  1. ACTIMMUNE [Suspect]
     Active Substance: INTERFERON GAMMA-1B
     Indication: IDIOPATHIC PULMONARY FIBROSIS
     Dosage: 200 MCG?3 TIMES A WEEK ?SQ
     Route: 058
     Dates: start: 201009

REACTIONS (2)
  - Movement disorder [None]
  - Pain in extremity [None]

NARRATIVE: CASE EVENT DATE: 20140713
